FAERS Safety Report 21930022 (Version 3)
Quarter: 2023Q1

REPORT INFORMATION
  Report Type: Spontaneous
  Country: GR (occurrence: GR)
  Receive Date: 20230131
  Receipt Date: 20230213
  Transmission Date: 20230418
  Serious: Yes (Other)
  Sender: FDA-Public Use
  Company Number: GR-PFIZER INC-PV202300004395

PATIENT
  Age: 47 Year
  Sex: Female

DRUGS (6)
  1. PEMBROLIZUMAB [Suspect]
     Active Substance: PEMBROLIZUMAB
     Dosage: 200 MG, Q21D, 4 CYCLES
     Dates: start: 20220617, end: 20220825
  2. PEMBROLIZUMAB [Suspect]
     Active Substance: PEMBROLIZUMAB
     Dosage: 200 MG, Q21D, 4 CYCLES
     Dates: start: 20220902, end: 20221104
  3. CARBOPLATIN [Suspect]
     Active Substance: CARBOPLATIN
     Dosage: 80MG/M2 (WEEKLY)
     Dates: start: 20220617, end: 20220825
  4. PACLITAXEL [Suspect]
     Active Substance: PACLITAXEL
     Dosage: 80 MG/M2, WEEKLY
     Dates: start: 20220617, end: 20220825
  5. DOXORUBICIN [Suspect]
     Active Substance: DOXORUBICIN
     Dosage: 60 MILLIGRAM/SQ. METER, EVEY 14 DAYS
     Dates: start: 20220902, end: 20221104
  6. CYCLOPHOSPHAMIDE [Suspect]
     Active Substance: CYCLOPHOSPHAMIDE
     Dosage: 600 MILLIGRAM/SQ. METER, EVERY 14 DAYS
     Dates: start: 20220902, end: 20221104

REACTIONS (7)
  - Neutropenia [Unknown]
  - Asthenia [Unknown]
  - Rhinorrhoea [Unknown]
  - Cough [Unknown]
  - Bone pain [Unknown]
  - Pyrexia [Unknown]
  - Inappropriate schedule of product administration [Unknown]

NARRATIVE: CASE EVENT DATE: 20220101
